FAERS Safety Report 6805369-6 (Version None)
Quarter: 2010Q2

REPORT INFORMATION
  Report Type: 
  Country: None (occurrence: None)
  Receive Date: 20100628
  Receipt Date: 20071019
  Transmission Date: 20101027
  Serious: No
  Sender: FDA-Public Use
  Company Number: US-PFIZER INC-2007090738

PATIENT
  Sex: Female

DRUGS (1)
  1. XALATAN [Suspect]
     Route: 047
     Dates: start: 20070601

REACTIONS (3)
  - GROWTH OF EYELASHES [None]
  - INCORRECT STORAGE OF DRUG [None]
  - OCULAR HYPERAEMIA [None]
